FAERS Safety Report 8143747-6 (Version None)
Quarter: 2012Q1

REPORT INFORMATION
  Report Type: 
  Country: None (occurrence: None)
  Receive Date: 20120217
  Receipt Date: 20120206
  Transmission Date: 20120608
  Serious: Yes (Hospitalization)
  Sender: FDA-Public Use
  Company Number: GB-RANBAXY-2011R1-42976

PATIENT
  Age: 87 Year
  Sex: Male
  Weight: 80 kg

DRUGS (6)
  1. FLUCLOXACILLIN [Suspect]
     Dosage: 2G, 4/1 DAYS
     Route: 042
  2. FLUCLOXACILLIN [Suspect]
     Indication: ARTHRITIS BACTERIAL
     Dosage: 1 G, 4 / 1 DAYS
     Route: 048
     Dates: start: 20101227, end: 20110107
  3. LAXIDO [Concomitant]
     Indication: PRODUCT USED FOR UNKNOWN INDICATION
     Dosage: 1 DF, 1/ 1DAYS
     Route: 065
  4. FLUOXETINE [Suspect]
     Indication: DEPRESSION
     Dosage: 20 MG, 1/1DAYS
     Route: 048
     Dates: start: 20110122, end: 20110124
  5. ASPIRIN [Concomitant]
     Indication: PRODUCT USED FOR UNKNOWN INDICATION
     Dosage: 75 MG, 1 / 1 DAYS
     Route: 065
  6. OMEPRAZOLE [Concomitant]
     Indication: PRODUCT USED FOR UNKNOWN INDICATION
     Dosage: 10 MG, 1/1 DAYS
     Route: 065

REACTIONS (2)
  - JAUNDICE [None]
  - HEPATOTOXICITY [None]
